FAERS Safety Report 7087112-1 (Version None)
Quarter: 2010Q4

REPORT INFORMATION
  Report Type: 
  Country: None (occurrence: None)
  Receive Date: 20101106
  Receipt Date: 20101028
  Transmission Date: 20110411
  Serious: No
  Sender: FDA-Public Use
  Company Number: US-WYE-H18435110

PATIENT
  Age: 59 Year
  Sex: Female
  Weight: 68.1 kg

DRUGS (6)
  1. ADVIL COLD AND SINUS [Suspect]
     Indication: NASOPHARYNGITIS
     Dosage: UNKNOWN
     Route: 048
     Dates: start: 20080101, end: 20080101
  2. ADVIL COLD AND SINUS [Suspect]
     Indication: UPPER-AIRWAY COUGH SYNDROME
     Dosage: 1 TABLET UP TO 5 PER DAY
     Route: 048
     Dates: start: 20101015, end: 20101018
  3. ASCORBIC ACID/ERGOCALCIFEROL/FOLIC ACID/NICOTINAMIDE/PANTHENOL/RETINOL [Concomitant]
  4. LOVAZA [Concomitant]
  5. SYNTHROID [Concomitant]
  6. VITAMIN B [Concomitant]

REACTIONS (2)
  - FAECES DISCOLOURED [None]
  - GASTRIC HAEMORRHAGE [None]
